FAERS Safety Report 8740161 (Version 3)
Quarter: 2012Q4

REPORT INFORMATION
  Report Type: Report from Study
  Country: GB (occurrence: GB)
  Receive Date: 20120823
  Receipt Date: 20121012
  Transmission Date: 20130627
  Serious: Yes (Hospitalization, Other)
  Sender: FDA-Public Use
  Company Number: GB-ROCHE-1104709

PATIENT
  Age: 71 Year
  Sex: Female
  Weight: 52 kg

DRUGS (7)
  1. ROACTEMRA [Suspect]
     Indication: RHEUMATOID ARTHRITIS
     Dosage: On 17/May/2012, the patient had last dose prior to SAE.
     Route: 042
     Dates: start: 20100224, end: 20120517
  2. MABTHERA [Suspect]
     Indication: RHEUMATOID ARTHRITIS
     Dosage: On 02/Feb/2010, the patient had last dose prior to SAE.
     Route: 065
     Dates: start: 20100119
  3. KAPAKE [Concomitant]
     Indication: ARTHRALGIA
  4. TRAMADOL [Concomitant]
     Indication: ARTHRALGIA
  5. SIMVASTATIN [Concomitant]
  6. THYROXINE [Concomitant]
  7. RISEDRONATE [Concomitant]

REACTIONS (4)
  - Neoplasm malignant [Not Recovered/Not Resolved]
  - Metastases to liver [Not Recovered/Not Resolved]
  - Metastases to lung [Not Recovered/Not Resolved]
  - Metastases to bone [Not Recovered/Not Resolved]
